FAERS Safety Report 7688136-3 (Version None)
Quarter: 2011Q3

REPORT INFORMATION
  Report Type: 
  Country: None (occurrence: None)
  Receive Date: 20110817
  Receipt Date: 20110805
  Transmission Date: 20111222
  Serious: Yes (Hospitalization, Other)
  Sender: FDA-Public Use
  Company Number: CA-ELI_LILLY_AND_COMPANY-CA201108002006

PATIENT
  Sex: Male

DRUGS (21)
  1. ZYPREXA [Suspect]
     Dosage: 5 MG, QD
  2. ALFUZOSIN HCL [Concomitant]
  3. FOLIC ACID [Concomitant]
  4. ATIVAN [Concomitant]
  5. DETROL LA [Concomitant]
  6. DIOVAN [Concomitant]
  7. EFFEXOR XR [Concomitant]
  8. METOCLOPRAMIDE [Concomitant]
  9. ZYPREXA [Suspect]
     Dosage: 2.5 MG, QD
  10. CHLORDIAZEPOXIDE [Concomitant]
  11. MAGLUCATE [Concomitant]
  12. NEXIUM [Concomitant]
  13. ASADOL [Concomitant]
  14. ZYPREXA [Suspect]
     Dosage: 7.5 MG, QD
  15. FLOMAX [Concomitant]
  16. SYNTHROID [Concomitant]
  17. CALCIUM D-500 [Concomitant]
  18. LIPITOR [Concomitant]
  19. ZYPREXA [Suspect]
     Indication: BIPOLAR DISORDER
     Dosage: 10 MG, QD
  20. LAMICTAL [Concomitant]
  21. SEROQUEL [Concomitant]

REACTIONS (10)
  - HYPERTENSION [None]
  - PANCREATITIS ACUTE [None]
  - FALL [None]
  - PANCREATITIS [None]
  - NECROSIS [None]
  - RIB FRACTURE [None]
  - CRANIOCEREBRAL INJURY [None]
  - URINARY TRACT INFECTION [None]
  - BALANCE DISORDER [None]
  - NAUSEA [None]
